FAERS Safety Report 8609782-6 (Version None)
Quarter: 2012Q3

REPORT INFORMATION
  Report Type: 
  Country: None (occurrence: None)
  Receive Date: 20120821
  Receipt Date: 20120815
  Transmission Date: 20120928
  Serious: Yes (Other)
  Sender: FDA-Public Use
  Company Number: CO-PFIZER INC-2012132158

PATIENT
  Age: 3 Year
  Sex: Female

DRUGS (1)
  1. CHILDREN'S ADVIL [Suspect]
     Indication: PYREXIA
     Dosage: 5 ML EVERY 6 HOURS
     Route: 048
     Dates: start: 20120529, end: 20120529

REACTIONS (2)
  - PYREXIA [None]
  - HYPOTHERMIA [None]
